FAERS Safety Report 8920912 (Version 1)
Quarter: 2012Q4

REPORT INFORMATION
  Report Type: 
  Country: US (occurrence: US)
  Receive Date: 20121122
  Receipt Date: 20121122
  Transmission Date: 20130627
  Serious: No
  Sender: FDA-Public Use
  Company Number: US-PFIZER INC-2012288730

PATIENT
  Age: 76 Year
  Sex: Female

DRUGS (1)
  1. XALKORI [Suspect]
     Indication: METASTASES TO CENTRAL NERVOUS SYSTEM
     Dosage: 250 mg, 2x/day

REACTIONS (2)
  - Oedema peripheral [Unknown]
  - Neuropathy peripheral [Unknown]
